FAERS Safety Report 4362361-1 (Version None)
Quarter: 2004Q2

REPORT INFORMATION
  Report Type: 
  Country: None (occurrence: None)
  Receive Date: 20040521
  Receipt Date: 20040426
  Transmission Date: 20050107
  Serious: Yes (Death, Other)
  Sender: FDA-Public Use
  Company Number: US-MERCK-0405USA00267

PATIENT
  Age: 63 Year
  Sex: Female

DRUGS (15)
  1. CISPLATIN [Concomitant]
     Route: 042
     Dates: start: 20040101
  2. DACARBAZINE [Concomitant]
     Route: 042
     Dates: start: 20040301
  3. INTERFERON ALFA [Concomitant]
     Route: 051
     Dates: start: 20040301
  4. ATIVAN [Concomitant]
     Indication: NAUSEA
     Route: 065
  5. ZOFRAN [Concomitant]
     Route: 042
  6. PROTONIX [Concomitant]
     Route: 065
  7. VINBLASTINE SULFATE [Suspect]
     Route: 042
     Dates: start: 20040301
  8. [THERAPY UNSPECIFIED] [Concomitant]
     Route: 065
  9. ALDESLEUKIN [Concomitant]
     Route: 042
     Dates: start: 20040301
  10. ALDESLEUKIN [Concomitant]
     Route: 042
  11. ALDESLEUKIN [Concomitant]
     Route: 042
  12. ALDESLEUKIN [Concomitant]
     Route: 042
  13. EMEND [Suspect]
     Indication: PROPHYLAXIS OF NAUSEA AND VOMITING
     Route: 048
  14. EMEND [Suspect]
     Route: 048
  15. EMEND [Suspect]
     Route: 048

REACTIONS (4)
  - BACTERIAL SEPSIS [None]
  - DRUG INTERACTION [None]
  - PANCYTOPENIA [None]
  - SEPTIC SHOCK [None]
